FAERS Safety Report 4487150-9 (Version None)
Quarter: 2004Q4

REPORT INFORMATION
  Report Type: 
  Country: None (occurrence: None)
  Receive Date: 20041027
  Receipt Date: 20041014
  Transmission Date: 20050328
  Serious: Yes (Hospitalization)
  Sender: FDA-Public Use
  Company Number: NZ-BRISTOL-MYERS SQUIBB COMPANY-12732236

PATIENT
  Age: 60 Year
  Sex: Male

DRUGS (10)
  1. CYCLOPHOSPHAMIDE [Suspect]
     Indication: CHRONIC LYMPHOCYTIC LEUKAEMIA
     Dosage: DAYS 5, 6, 7
     Route: 042
     Dates: start: 20021202, end: 20021204
  2. FLUDARABINE PHOSPHATE [Suspect]
     Indication: CHRONIC LYMPHOCYTIC LEUKAEMIA
     Dosage: DAYS 5, 6, 7
     Route: 042
     Dates: start: 20021202, end: 20021204
  3. GENASENSE [Suspect]
     Indication: CHRONIC LYMPHOCYTIC LEUKAEMIA
     Dosage: DAYS 1-7
     Route: 042
     Dates: start: 20021128, end: 20021203
  4. ACETAMINOPHEN [Concomitant]
  5. ACETAMINOPHEN W/ CODEINE [Concomitant]
  6. SILDENAFIL [Concomitant]
  7. SULFAMETHOXAZOLE + TRIMETHOPRIM [Concomitant]
  8. METOCLOPRAMIDE [Concomitant]
  9. ACYCLOVIR [Concomitant]
  10. ALLOPURINOL [Concomitant]

REACTIONS (1)
  - HEPATITIS B [None]
